FAERS Safety Report 5989494-8 (Version None)
Quarter: 2008Q4

REPORT INFORMATION
  Report Type: 
  Country: None (occurrence: None)
  Receive Date: 20081208
  Receipt Date: 20081125
  Transmission Date: 20090506
  Serious: Yes (Hospitalization)
  Sender: FDA-Public Use
  Company Number: 2008AL012022

PATIENT
  Age: 75 Year
  Sex: Female
  Weight: 63.5036 kg

DRUGS (8)
  1. DIGOXIN [Suspect]
     Indication: CARDIAC DISORDER
     Dosage: 2 TABS, QD, PO
     Route: 048
     Dates: end: 20080401
  2. INSULIN [Concomitant]
  3. NITROGLYCERIN [Concomitant]
  4. POTASSIUM CHLORIDE [Concomitant]
  5. PRILOSEC [Concomitant]
  6. ALAPERNOL [Concomitant]
  7. METOPROL [Concomitant]
  8. NAPEROL [Concomitant]

REACTIONS (7)
  - BLOOD GLUCOSE DECREASED [None]
  - DIARRHOEA [None]
  - DIZZINESS [None]
  - GASTRIC ULCER [None]
  - GASTRIC ULCER HAEMORRHAGE [None]
  - HYPERHIDROSIS [None]
  - TREMOR [None]
